FAERS Safety Report 10609880 (Version 2)
Quarter: 2014Q4

REPORT INFORMATION
  Report Type: Report from Study
  Country: JP (occurrence: JP)
  Receive Date: 20141126
  Receipt Date: 20141126
  Transmission Date: 20150529
  Serious: Yes (Death)
  Sender: FDA-Public Use
  Company Number: JP-SA-2014SA086703

PATIENT
  Age: 26 Year
  Sex: Female
  Weight: 32.4 kg

DRUGS (24)
  1. VANCOMYCIN [Concomitant]
     Active Substance: VANCOMYCIN
     Indication: FEBRILE NEUTROPENIA
     Dates: start: 20130529, end: 20130610
  2. SUPRECUR [Concomitant]
     Active Substance: BUSERELIN
     Indication: PROPHYLAXIS
     Dates: start: 20130612, end: 20130612
  3. TAKEPRON [Concomitant]
     Active Substance: LANSOPRAZOLE
     Indication: PROPHYLAXIS AGAINST GASTROINTESTINAL ULCER
     Dates: start: 20130507, end: 20140123
  4. SOLU-MEDROL [Concomitant]
     Active Substance: METHYLPREDNISOLONE SODIUM SUCCINATE
     Indication: PROPHYLAXIS
     Dates: start: 20130507, end: 20130508
  5. TARGOCID [Concomitant]
     Active Substance: TEICOPLANIN
     Indication: FEBRILE NEUTROPENIA
     Dates: start: 20130515, end: 20130528
  6. CRAVIT [Concomitant]
     Active Substance: LEVOFLOXACIN
     Indication: ANTIBIOTIC PROPHYLAXIS
     Dates: start: 20130712, end: 20140124
  7. ZOVIRAX [Concomitant]
     Active Substance: ACYCLOVIR
     Indication: ANTIVIRAL PROPHYLAXIS
     Dates: start: 20130503, end: 20140124
  8. NEORAL [Concomitant]
     Active Substance: CYCLOSPORINE
     Indication: PROPHYLAXIS AGAINST GRAFT VERSUS HOST DISEASE
     Dates: start: 20130625, end: 20130924
  9. OXYCONTIN [Concomitant]
     Active Substance: OXYCODONE HYDROCHLORIDE
     Indication: PAIN IN EXTREMITY
     Dates: start: 20130504, end: 20130514
  10. DIFLUCAN [Concomitant]
     Active Substance: FLUCONAZOLE
     Indication: ANTIFUNGAL PROPHYLAXIS
     Dates: start: 20130501, end: 20140124
  11. THYMOGLOBULINE [Suspect]
     Active Substance: LAPINE T-LYMPHOCYTE IMMUNE GLOBULIN
     Indication: BONE MARROW CONDITIONING REGIMEN
     Route: 042
     Dates: start: 20130507, end: 20130508
  12. METHOTREXATE [Concomitant]
     Active Substance: METHOTREXATE
     Indication: PROPHYLAXIS AGAINST GRAFT VERSUS HOST DISEASE
     Dates: start: 20130512, end: 20130512
  13. SUPRECUR [Concomitant]
     Active Substance: BUSERELIN
     Indication: PROPHYLAXIS
     Dates: start: 20130710, end: 20130710
  14. METHOTREXATE [Concomitant]
     Active Substance: METHOTREXATE
     Indication: PROPHYLAXIS AGAINST GRAFT VERSUS HOST DISEASE
     Dates: start: 20130515, end: 20130515
  15. FINIBAX [Concomitant]
     Active Substance: DORIPENEM MONOHYDRATE
     Indication: FEBRILE NEUTROPENIA
     Dates: start: 20130515, end: 20130528
  16. MEROPEN [Concomitant]
     Active Substance: MEROPENEM
     Indication: FEBRILE NEUTROPENIA
     Dates: start: 20130529, end: 20130614
  17. METHOTREXATE [Concomitant]
     Active Substance: METHOTREXATE
     Indication: PROPHYLAXIS AGAINST GRAFT VERSUS HOST DISEASE
     Dates: start: 20130510, end: 20130510
  18. SUPRECUR [Concomitant]
     Active Substance: BUSERELIN
     Indication: PROPHYLAXIS
     Dates: start: 20130515, end: 20130515
  19. VANCOMYCIN [Concomitant]
     Active Substance: VANCOMYCIN
     Indication: FEBRILE NEUTROPENIA
     Dates: start: 20130424, end: 20130514
  20. SANDIMMUNE [Concomitant]
     Active Substance: CYCLOSPORINE
     Indication: PROPHYLAXIS AGAINST GRAFT VERSUS HOST DISEASE
     Dates: start: 20130508, end: 20130624
  21. FUNGUARD [Concomitant]
     Active Substance: MICAFUNGIN SODIUM
     Indication: ANTIFUNGAL PROPHYLAXIS
     Dates: start: 20130515, end: 20130617
  22. MAXIPIME [Concomitant]
     Active Substance: CEFEPIME HYDROCHLORIDE
     Indication: FEBRILE NEUTROPENIA
     Dates: start: 20130707, end: 20130711
  23. MEROPEN [Concomitant]
     Active Substance: MEROPENEM
     Indication: FEBRILE NEUTROPENIA
     Dates: start: 20130421, end: 20130514
  24. MAXIPIME [Concomitant]
     Active Substance: CEFEPIME HYDROCHLORIDE
     Indication: FEBRILE NEUTROPENIA
     Dates: start: 20130614, end: 20130624

REACTIONS (8)
  - Insomnia [Not Recovered/Not Resolved]
  - Pyrexia [Recovered/Resolved]
  - Decreased appetite [Not Recovered/Not Resolved]
  - Pruritus [Recovered/Resolved]
  - Myelodysplastic syndrome [Fatal]
  - Vomiting [Recovering/Resolving]
  - Oral disorder [Recovering/Resolving]
  - Thyroiditis subacute [Recovered/Resolved]

NARRATIVE: CASE EVENT DATE: 20130507
